FAERS Safety Report 5085928-4 (Version None)
Quarter: 2006Q3

REPORT INFORMATION
  Report Type: 
  Country: None (occurrence: None)
  Receive Date: 20060817
  Receipt Date: 20060803
  Transmission Date: 20061208
  Serious: Yes (Other)
  Sender: FDA-Public Use
  Company Number: 2006078845

PATIENT
  Age: 77 Year
  Sex: Male
  Weight: 84.3 kg

DRUGS (12)
  1. NORVASC [Suspect]
     Indication: HYPERTENSION
     Dosage: SEE IMAGE, ORAL
     Route: 048
     Dates: start: 20051110, end: 20051130
  2. NORVASC [Suspect]
     Indication: HYPERTENSION
     Dosage: SEE IMAGE, ORAL
     Route: 048
     Dates: start: 20051201
  3. INDERAL LA [Suspect]
     Indication: HYPERTENSION
     Dosage: 80 MG (80 MG MG, DAILY), ORAL
     Route: 048
  4. CALCIUM CARBONATE (CALCIUM CARBONATE) [Concomitant]
  5. ALLOPURINOL [Concomitant]
  6. DARBEPOETIN ALFA (DARBEPOETIN ALFA) [Concomitant]
  7. ASPIRIN [Concomitant]
  8. ATORVASTATIN CALCIUM [Concomitant]
  9. MULTIVITAMIN [Concomitant]
  10. VENOFER [Concomitant]
  11. PERINDOPRIL ERBUMINE [Concomitant]
  12. EXTRA STRENGTH TYLENOL [Concomitant]

REACTIONS (7)
  - BLOOD CREATININE INCREASED [None]
  - BLOOD UREA INCREASED [None]
  - DIALYSIS [None]
  - FATIGUE [None]
  - GLOMERULAR FILTRATION RATE DECREASED [None]
  - RENAL IMPAIRMENT [None]
  - URINE OUTPUT DECREASED [None]
